FAERS Safety Report 9883696 (Version 2)
Quarter: 2014Q1

REPORT INFORMATION
  Report Type: Spontaneous
  Country: GB (occurrence: GB)
  Receive Date: 20140210
  Receipt Date: 20140210
  Transmission Date: 20141002
  Serious: Yes (Other)
  Sender: FDA-Public Use
  Company Number: GB-ACCORD-020109

PATIENT
  Age: 52 Year
  Sex: Female

DRUGS (1)
  1. ACCORD HEALTHCARE LISINOPRIL [Suspect]
     Indication: HYPERTENSION
     Route: 048
     Dates: start: 20130808, end: 20130813

REACTIONS (4)
  - Urticaria [Recovered/Resolved]
  - Product substitution issue [Unknown]
  - Swelling [Unknown]
  - Rash [Recovered/Resolved]
